FAERS Safety Report 4405922-3 (Version None)
Quarter: 2004Q3

REPORT INFORMATION
  Report Type: 
  Country: None (occurrence: None)
  Receive Date: 20040723
  Receipt Date: 20040209
  Transmission Date: 20050211
  Serious: No
  Sender: FDA-Public Use
  Company Number: US-GLAXOSMITHKLINE-A0497208A

PATIENT
  Age: 63 Year
  Sex: Female

DRUGS (10)
  1. AVANDIA [Suspect]
     Route: 048
  2. CARDURA [Concomitant]
  3. LASIX [Concomitant]
  4. ATENOLOL [Concomitant]
  5. DIOVAN [Concomitant]
  6. POTASSIUM [Concomitant]
  7. PREMARIN [Concomitant]
  8. GLUCOPHAGE [Concomitant]
  9. GLYBURIDE [Concomitant]
  10. TRICOR [Concomitant]

REACTIONS (1)
  - HEADACHE [None]
